FAERS Safety Report 17740157 (Version 1)
Quarter: 2020Q2

REPORT INFORMATION
  Report Type: Spontaneous
  Country: US (occurrence: US)
  Receive Date: 20200502
  Receipt Date: 20200502
  Transmission Date: 20200714
  Serious: Yes (Hospitalization)
  Sender: FDA-Public Use
  Company Number: None

PATIENT
  Sex: Female
  Weight: 93.8 kg

DRUGS (1)
  1. TAXOL [Suspect]
     Active Substance: PACLITAXEL
     Dates: start: 20200415

REACTIONS (10)
  - Vomiting [None]
  - Fatigue [None]
  - Diarrhoea [None]
  - Back pain [None]
  - Hypovolaemia [None]
  - Syncope [None]
  - Hyponatraemia [None]
  - Nausea [None]
  - Dyspepsia [None]
  - Intestinal obstruction [None]

NARRATIVE: CASE EVENT DATE: 20200422
